FAERS Safety Report 9281702 (Version 1)
Quarter: 2013Q2

REPORT INFORMATION
  Report Type: Spontaneous
  Country: FR (occurrence: FR)
  Receive Date: 20130509
  Receipt Date: 20130509
  Transmission Date: 20140414
  Serious: Yes (Hospitalization)
  Sender: FDA-Public Use
  Company Number: FR-ABBOTT-13X-056-1085122-00

PATIENT
  Age: 58 Year
  Sex: Male

DRUGS (10)
  1. TARKA [Suspect]
     Indication: HYPERTENSION
     Route: 048
     Dates: start: 201206
  2. LEDERFOLINE [Suspect]
     Indication: PSORIASIS
     Route: 048
     Dates: start: 2000
  3. INDOCID [Suspect]
     Indication: PSORIASIS
     Route: 048
     Dates: start: 2000
  4. CYTOTEC [Suspect]
     Indication: ANTACID THERAPY
     Route: 048
     Dates: start: 2000
  5. ZYLORIC [Suspect]
     Indication: HYPERURICAEMIA
     Route: 048
     Dates: start: 2000
  6. STELARA [Suspect]
     Indication: PSORIASIS
     Route: 048
     Dates: start: 20111022, end: 20120922
  7. METHOTREXATE [Suspect]
     Indication: PSORIASIS
     Route: 048
     Dates: start: 2000
  8. REMICADE [Concomitant]
     Indication: PRODUCT USED FOR UNKNOWN INDICATION
     Dates: start: 20070820, end: 20101115
  9. HUMIRA [Concomitant]
     Indication: PRODUCT USED FOR UNKNOWN INDICATION
     Dates: start: 20101005, end: 20110925
  10. ENBREL [Concomitant]
     Indication: PRODUCT USED FOR UNKNOWN INDICATION
     Dates: start: 20130128

REACTIONS (1)
  - Nephrolithiasis [Recovering/Resolving]
